FAERS Safety Report 9414332 (Version 2)
Quarter: 2013Q3

REPORT INFORMATION
  Report Type: Spontaneous
  Country: CA (occurrence: CA)
  Receive Date: 20130723
  Receipt Date: 20130813
  Transmission Date: 20140515
  Serious: Yes (Other)
  Sender: FDA-Public Use
  Company Number: CA-AMGEN-CANSP2013050088

PATIENT
  Age: 61 Year
  Sex: Female
  Weight: 40.82 kg

DRUGS (1)
  1. PROLIA [Suspect]
     Indication: OSTEOPOROSIS POSTMENOPAUSAL
     Dosage: UNK
     Route: 058
     Dates: start: 20111219

REACTIONS (9)
  - Osteoarthritis [Unknown]
  - Influenza like illness [Unknown]
  - Nasopharyngitis [Unknown]
  - Balance disorder [Unknown]
  - Hypophagia [Unknown]
  - Pain [Unknown]
  - Asthenia [Unknown]
  - Condition aggravated [Unknown]
  - Pain in extremity [Unknown]
